FAERS Safety Report 24439610 (Version 2)
Quarter: 2024Q4

REPORT INFORMATION
  Report Type: Spontaneous
  Country: ZA (occurrence: ZA)
  Receive Date: 20241015
  Receipt Date: 20241129
  Transmission Date: 20250114
  Serious: Yes (Other)
  Sender: MERCK
  Company Number: ZA-009507513-2410ZAF004866

PATIENT
  Sex: Female

DRUGS (1)
  1. KEYTRUDA [Suspect]
     Active Substance: PEMBROLIZUMAB
     Indication: Metastatic malignant melanoma
     Dosage: UNK

REACTIONS (2)
  - Tumour pseudoprogression [Unknown]
  - Malignant neoplasm progression [Unknown]
